FAERS Safety Report 7162576-3 (Version None)
Quarter: 2010Q4

REPORT INFORMATION
  Report Type: 
  Country: None (occurrence: None)
  Receive Date: 20101215
  Receipt Date: 20091127
  Transmission Date: 20110411
  Serious: Yes (Other)
  Sender: FDA-Public Use
  Company Number: FR-PFIZER INC-2009235542

PATIENT
  Age: 67 Year
  Sex: Female
  Weight: 65 kg

DRUGS (8)
  1. LYRICA [Suspect]
     Indication: NEURALGIA
     Dosage: 75 MG, 1X/DAY
     Dates: start: 20090604, end: 20090605
  2. NOCERTONE [Concomitant]
     Dosage: 60 MG, UNK
  3. PARACETAMOL [Concomitant]
     Dosage: UNK
  4. OPIUM ^DAK^ [Concomitant]
     Dosage: UNK
  5. LAMALINE [Concomitant]
     Dosage: 6 DF, UNK
     Route: 048
  6. NEXIUM [Concomitant]
     Dosage: UNK, 1X/DAY
     Route: 048
     Dates: start: 20090501, end: 20090601
  7. TANAKAN [Concomitant]
     Dosage: UNK, 3X/DAY
     Route: 048
  8. MYOLASTAN [Concomitant]
     Dosage: UNK, 1X/DAY
     Route: 048

REACTIONS (29)
  - ABDOMINAL DISTENSION [None]
  - ABNORMAL DREAMS [None]
  - ALTERED STATE OF CONSCIOUSNESS [None]
  - APATHY [None]
  - BALANCE DISORDER [None]
  - CONFUSIONAL STATE [None]
  - CONSTIPATION [None]
  - DECREASED APPETITE [None]
  - DELIRIUM [None]
  - DISTURBANCE IN ATTENTION [None]
  - DIZZINESS [None]
  - DRY EYE [None]
  - DRY MOUTH [None]
  - EYE SWELLING [None]
  - FATIGUE [None]
  - FEELING COLD [None]
  - GAIT DISTURBANCE [None]
  - HALLUCINATION, VISUAL [None]
  - HOT FLUSH [None]
  - HYPOAESTHESIA [None]
  - HYPOAESTHESIA ORAL [None]
  - MEMORY IMPAIRMENT [None]
  - OEDEMA PERIPHERAL [None]
  - PERSONALITY DISORDER [None]
  - PHOSPHENES [None]
  - SOMNOLENCE [None]
  - SPEECH DISORDER [None]
  - VERTIGO [None]
  - VISION BLURRED [None]
